FAERS Safety Report 19922446 (Version 1)
Quarter: 2021Q4

REPORT INFORMATION
  Report Type: Spontaneous
  Country: US (occurrence: US)
  Receive Date: 20211005
  Receipt Date: 20211005
  Transmission Date: 20220303
  Serious: No
  Sender: FDA-Public Use
  Company Number: US-SANOFI-00794287

PATIENT
  Age: 78 Year
  Sex: Female

DRUGS (1)
  1. LANTUS SOLOSTAR [Suspect]
     Active Substance: INSULIN GLARGINE
     Indication: Type 2 diabetes mellitus
     Dosage: 50 IU, QD
     Route: 065

REACTIONS (6)
  - Anxiety [Recovering/Resolving]
  - Nervousness [Recovering/Resolving]
  - Frustration tolerance decreased [Unknown]
  - Tremor [Unknown]
  - Incorrect dose administered by device [Recovering/Resolving]
  - Device defective [Recovering/Resolving]
